FAERS Safety Report 25539425 (Version 3)
Quarter: 2025Q3

REPORT INFORMATION
  Report Type: Report from Study
  Country: US (occurrence: US)
  Receive Date: 20250710
  Receipt Date: 20250828
  Transmission Date: 20251020
  Serious: No
  Sender: SUNOVION
  Company Number: US-SUMITOMO PHARMA SWITZERLAND GMBH-2025SPA007731

PATIENT
  Age: 64 Year
  Sex: Male

DRUGS (17)
  1. ORGOVYX [Suspect]
     Active Substance: RELUGOLIX
     Indication: Prostate cancer
     Route: 048
     Dates: start: 20240524, end: 20240524
  2. ORGOVYX [Suspect]
     Active Substance: RELUGOLIX
     Route: 048
  3. ASPIRIN [Concomitant]
     Active Substance: ASPIRIN
  4. CELECOXIB [Concomitant]
     Active Substance: CELECOXIB
  5. CITALOPRAM [Concomitant]
     Active Substance: CITALOPRAM
  6. DICYCLOMINE [Concomitant]
     Active Substance: DICYCLOMINE HYDROCHLORIDE
  7. ERLEADA [Concomitant]
     Active Substance: APALUTAMIDE
     Dosage: 240 MG, QD
  8. EZETIMIBE [Concomitant]
     Active Substance: EZETIMIBE
  9. GABAPENTIN [Concomitant]
     Active Substance: GABAPENTIN
  10. LISINOPRIL [Concomitant]
     Active Substance: LISINOPRIL
  11. METFORMIN [Concomitant]
     Active Substance: METFORMIN HYDROCHLORIDE
  12. NITROGLYCERIN [Concomitant]
     Active Substance: NITROGLYCERIN
  13. ROSUVASTATIN CALCIUM [Concomitant]
     Active Substance: ROSUVASTATIN CALCIUM
  14. MAGNESIUM [Concomitant]
     Active Substance: MAGNESIUM
  15. TAMSULOSIN [Concomitant]
     Active Substance: TAMSULOSIN
  16. VITAMIN D3 [Concomitant]
     Active Substance: CHOLECALCIFEROL
  17. METHOCARBAMOL [Concomitant]
     Active Substance: METHOCARBAMOL

REACTIONS (4)
  - Testicular pain [Unknown]
  - Flatulence [Unknown]
  - Sluggishness [Unknown]
  - Hot flush [Unknown]
